FAERS Safety Report 8932398 (Version 1)
Quarter: 2012Q4

REPORT INFORMATION
  Report Type: 
  Country: NZ (occurrence: NZ)
  Receive Date: 20121128
  Receipt Date: 20121128
  Transmission Date: 20130627
  Serious: Yes (Other)
  Sender: FDA-Public Use
  Company Number: PHHY2012NZ107741

PATIENT
  Sex: Female

DRUGS (1)
  1. CLOZARIL [Suspect]
     Dates: start: 20120419

REACTIONS (6)
  - Choking sensation [Unknown]
  - Lower respiratory tract infection [Unknown]
  - Malaise [Unknown]
  - Productive cough [Unknown]
  - Diabetes mellitus [Unknown]
  - Salivary hypersecretion [Unknown]
